FAERS Safety Report 6528692-1 (Version None)
Quarter: 2010Q1

REPORT INFORMATION
  Report Type: 
  Country: None (occurrence: None)
  Receive Date: 20100106
  Receipt Date: 20091228
  Transmission Date: 20100710
  Serious: Yes (Hospitalization)
  Sender: FDA-Public Use
  Company Number: JP-JNJFOC-20091205721

PATIENT
  Sex: Female
  Weight: 52 kg

DRUGS (12)
  1. GOLIMUMAB [Suspect]
     Route: 058
  2. GOLIMUMAB [Suspect]
     Route: 058
  3. GOLIMUMAB [Suspect]
     Indication: RHEUMATOID ARTHRITIS
     Route: 058
  4. PLACEBO [Suspect]
     Indication: RHEUMATOID ARTHRITIS
     Route: 058
  5. RHEUMATREX [Concomitant]
     Indication: RHEUMATOID ARTHRITIS
     Route: 048
  6. PREDONINE [Concomitant]
     Indication: RHEUMATOID ARTHRITIS
     Route: 048
  7. LIPODOWN [Concomitant]
     Indication: HYPERLIPIDAEMIA
     Route: 048
  8. HYPEN [Concomitant]
     Indication: RHEUMATOID ARTHRITIS
     Route: 048
  9. FOLIAMIN [Concomitant]
     Route: 048
  10. BACTRAMIN [Concomitant]
     Indication: ANTIBIOTIC PROPHYLAXIS
     Route: 048
  11. FOSAMAC [Concomitant]
     Indication: OSTEOPOROSIS
     Route: 048
  12. GASRICK D [Concomitant]
     Indication: GASTRITIS
     Route: 048

REACTIONS (2)
  - ADRENAL INSUFFICIENCY [None]
  - INFLUENZA [None]
